FAERS Safety Report 16182793 (Version 2)
Quarter: 2019Q2

REPORT INFORMATION
  Report Type: Spontaneous
  Country: HK (occurrence: HK)
  Receive Date: 20190411
  Receipt Date: 20190415
  Transmission Date: 20190711
  Serious: Yes (Death, Other)
  Sender: FDA-Public Use
  Company Number: HK-ROCHE-2301877

PATIENT
  Sex: Female

DRUGS (2)
  1. AVASTIN [Suspect]
     Active Substance: BEVACIZUMAB
     Dosage: 4 VIALS
     Route: 065
  2. AVASTIN [Suspect]
     Active Substance: BEVACIZUMAB
     Indication: GLIOBLASTOMA
     Dosage: 7 VIALS OF 100MG
     Route: 065

REACTIONS (2)
  - Death [Fatal]
  - General physical health deterioration [Unknown]
